FAERS Safety Report 24135541 (Version 1)
Quarter: 2024Q3

REPORT INFORMATION
  Report Type: Spontaneous
  Country: AT (occurrence: AT)
  Receive Date: 20240725
  Receipt Date: 20240725
  Transmission Date: 20241017
  Serious: Yes (Other)
  Sender: BAXTER
  Company Number: None

PATIENT
  Age: 60 Year
  Sex: Female
  Weight: 80 kg

DRUGS (15)
  1. DOXORUBICIN [Suspect]
     Active Substance: DOXORUBICIN
     Indication: Diffuse large B-cell lymphoma
     Dosage: UNK
     Route: 042
     Dates: start: 20230201, end: 20230517
  2. CYCLOPHOSPHAMIDE [Suspect]
     Active Substance: CYCLOPHOSPHAMIDE
     Indication: Diffuse large B-cell lymphoma
     Dosage: 1599.48 MILLIGRAM, DAY 2, DOSAGE FORM: INJECTION
     Route: 042
     Dates: start: 20230201
  3. CYCLOPHOSPHAMIDE [Suspect]
     Active Substance: CYCLOPHOSPHAMIDE
     Dosage: 1594.45 MG, THE LAST DOSE PRIOR TO THE EVENT WAS IV 1594.45 MG
     Route: 042
     Dates: start: 20230201, end: 20230517
  4. LENALIDOMIDE [Suspect]
     Active Substance: LENALIDOMIDE
     Indication: Diffuse large B-cell lymphoma
     Dosage: 25 MG, EVERY 1 DAY, THE LAST DOSE OF LENALIDOMIDE PRIOR TO THE EVENT WAS 10 MG.
     Route: 048
     Dates: start: 20230201, end: 20230523
  5. LENALIDOMIDE [Suspect]
     Active Substance: LENALIDOMIDE
     Dosage: 10 MG, THE LAST DOSE OF LENALIDOMIDE PRIOR TO THE EVENT WAS 10 MG.
     Route: 048
  6. TAFASITAMAB [Suspect]
     Active Substance: TAFASITAMAB
     Indication: Diffuse large B-cell lymphoma
     Dosage: 1063 MG, EVERY 1 WEEK, LAST DOSE OF TAFASITAMAB PRIOR TO THE EVENT WAS RECEIVED ON 31-MAY-2023 AT DO
     Route: 042
     Dates: start: 20230531
  7. TAFASITAMAB [Suspect]
     Active Substance: TAFASITAMAB
     Dosage: 1008 MG, EVERY 1 WEEK, LAST DOSE OF TAFASITAMAB PRIOR TO THE EVENT WAS RECEIVED ON 31-MAY-2023 AT DO
     Route: 042
     Dates: start: 20230201, end: 20230517
  8. VINCRISTINE [Suspect]
     Active Substance: VINCRISTINE
     Indication: Diffuse large B-cell lymphoma
     Dosage: 2 MG, EVERY 2 DAYS, LAST DOSE PRIOR TO THE EVENT WAS 2 MG, DAY 1
     Route: 042
  9. VINCRISTINE [Suspect]
     Active Substance: VINCRISTINE
     Dosage: 2 MG, EVERY 2 DAYS, LAST DOSE PRIOR TO THE EVENT WAS 2 MG, DAY 1
     Route: 042
     Dates: start: 20230201
  10. RITUXIMAB [Suspect]
     Active Substance: RITUXIMAB
     Indication: Diffuse large B-cell lymphoma
     Dosage: 771.79 MG (BINDING THERAPY)
     Route: 065
     Dates: start: 20231026
  11. RITUXIMAB [Suspect]
     Active Substance: RITUXIMAB
     Dosage: 779.74 MG (MILLIGRAM), EVERY 1 DAY
     Route: 042
     Dates: start: 20230201, end: 20230517
  12. RITUXIMAB [Suspect]
     Active Substance: RITUXIMAB
     Dosage: 797.23 MG (MILLIGRAM), LAST DOSE PRIOR THE EVENT
     Route: 042
  13. BENDAMUSTINE [Suspect]
     Active Substance: BENDAMUSTINE
     Indication: Diffuse large B-cell lymphoma
     Dosage: 185.23 MG, (BINDING THERAPY)
     Route: 065
     Dates: start: 20231026, end: 20231027
  14. PREDNISOLONE [Suspect]
     Active Substance: PREDNISOLONE
     Indication: Diffuse large B-cell lymphoma
     Dosage: 100 MILLIGRAM, DAY 1-5
     Route: 048
     Dates: start: 20230201, end: 20230517
  15. POLATUZUMAB VEDOTIN [Suspect]
     Active Substance: POLATUZUMAB VEDOTIN
     Indication: Diffuse large B-cell lymphoma
     Dosage: 147.6 MILLIGRAM (BINDING THERAPY)
     Route: 065
     Dates: start: 20231026

REACTIONS (2)
  - Lung adenocarcinoma stage I [Recovered/Resolved]
  - Disease progression [Unknown]

NARRATIVE: CASE EVENT DATE: 20231010
